FAERS Safety Report 22611571 (Version 1)
Quarter: 2023Q2

REPORT INFORMATION
  Report Type: Spontaneous
  Country: DE (occurrence: DE)
  Receive Date: 20230616
  Receipt Date: 20230616
  Transmission Date: 20230722
  Serious: Yes (Hospitalization, Other)
  Sender: FDA-Public Use
  Company Number: None

PATIENT
  Age: 23 Year
  Sex: Female

DRUGS (1)
  1. ZEPOSIA [Suspect]
     Active Substance: OZANIMOD HYDROCHLORIDE
     Indication: Multiple sclerosis
     Dosage: 0,92 MG 1-0-0
     Route: 048
     Dates: start: 20220701, end: 20230608

REACTIONS (5)
  - Dyspnoea [Recovering/Resolving]
  - Hypertensive crisis [Recovering/Resolving]
  - Pulmonary oedema [Recovering/Resolving]
  - Headache [Recovering/Resolving]
  - Cardiac failure acute [Recovering/Resolving]

NARRATIVE: CASE EVENT DATE: 20230601
